FAERS Safety Report 15322572 (Version 18)
Quarter: 2019Q4

REPORT INFORMATION
  Report Type: Report from Study
  Country: US (occurrence: US)
  Receive Date: 20180827
  Receipt Date: 20191101
  Transmission Date: 20200122
  Serious: Yes (Other)
  Sender: FDA-Public Use
  Company Number: US-JNJFOC-20180805816

PATIENT
  Age: 73 Year
  Sex: Female

DRUGS (24)
  1. IMBRUVICA [Suspect]
     Active Substance: IBRUTINIB
     Dosage: 140MG, QD
     Route: 048
     Dates: start: 20150528
  2. IMBRUVICA [Suspect]
     Active Substance: IBRUTINIB
     Dosage: 140MG. QD
     Route: 048
     Dates: start: 20180703
  3. FINASTERIDE. [Concomitant]
     Active Substance: FINASTERIDE
  4. VALACYCLOVIR HCL [Concomitant]
     Active Substance: VALACYCLOVIR HYDROCHLORIDE
  5. IMBRUVICA [Suspect]
     Active Substance: IBRUTINIB
     Dosage: 280MG, QD
     Route: 048
     Dates: start: 20150114, end: 20150527
  6. IMBRUVICA [Suspect]
     Active Substance: IBRUTINIB
     Indication: CHRONIC LYMPHOCYTIC LEUKAEMIA
     Route: 048
     Dates: start: 2014, end: 201702
  7. IMBRUVICA [Suspect]
     Active Substance: IBRUTINIB
     Dosage: 420MG, QD
     Route: 048
     Dates: start: 20140814
  8. IMBRUVICA [Suspect]
     Active Substance: IBRUTINIB
     Dosage: 140 MG, THREE TIMES A WEEK
     Route: 048
     Dates: start: 20150703
  9. IMBRUVICA [Suspect]
     Active Substance: IBRUTINIB
     Dosage: 70 MG, QD
     Route: 048
     Dates: start: 20181012
  10. DOXYCYCLINE HYCLATE. [Concomitant]
     Active Substance: DOXYCYCLINE HYCLATE
  11. IMBRUVICA [Suspect]
     Active Substance: IBRUTINIB
     Dosage: 140MG, QD
     Route: 048
     Dates: start: 20150114, end: 20181011
  12. IMBRUVICA [Suspect]
     Active Substance: IBRUTINIB
     Route: 048
     Dates: start: 20170207
  13. IMBRUVICA [Suspect]
     Active Substance: IBRUTINIB
     Dosage: 70MG. QD
     Route: 048
     Dates: start: 20160201
  14. VITAMIN D [Concomitant]
     Active Substance: VITAMIN D NOS
  15. IMBRUVICA [Suspect]
     Active Substance: IBRUTINIB
     Dosage: 280 MG, QD
     Route: 048
     Dates: start: 20150123
  16. CRESTOR [Concomitant]
     Active Substance: ROSUVASTATIN CALCIUM
  17. IMBRUVICA [Suspect]
     Active Substance: IBRUTINIB
     Dosage: 140 MG, QD
     Route: 048
     Dates: end: 201702
  18. IMBRUVICA [Suspect]
     Active Substance: IBRUTINIB
     Dosage: 140 MG. QD
     Route: 048
     Dates: start: 20180703
  19. ALIGN [Concomitant]
     Active Substance: BIFIDOBACTERIUM LONGUM SUBSP. INFANTIS
  20. SYNTHROID [Concomitant]
     Active Substance: LEVOTHYROXINE SODIUM
  21. ESTRACE [Concomitant]
     Active Substance: ESTRADIOL
  22. BIAXIN [Concomitant]
     Active Substance: CLARITHROMYCIN
  23. IMBRUVICA [Suspect]
     Active Substance: IBRUTINIB
     Dosage: 140 MG, TWO TIMES A WEEK
     Route: 048
     Dates: start: 20160910
  24. BIOTIN [Concomitant]
     Active Substance: BIOTIN

REACTIONS (23)
  - Platelet count decreased [Not Recovered/Not Resolved]
  - Flatulence [Unknown]
  - Contusion [Not Recovered/Not Resolved]
  - Abdominal discomfort [Unknown]
  - Red blood cell count decreased [Not Recovered/Not Resolved]
  - Tinnitus [Recovering/Resolving]
  - Arthralgia [Unknown]
  - Pain in extremity [Unknown]
  - Gastrooesophageal reflux disease [Unknown]
  - Fatigue [Unknown]
  - Pruritus [Unknown]
  - Muscle spasms [Not Recovered/Not Resolved]
  - Increased tendency to bruise [Not Recovered/Not Resolved]
  - Weight increased [Recovering/Resolving]
  - Peripheral swelling [Unknown]
  - Off label use [Unknown]
  - Abdominal distension [Unknown]
  - Joint swelling [Unknown]
  - Haemoglobin decreased [Not Recovered/Not Resolved]
  - Inappropriate schedule of product administration [Unknown]
  - Disease progression [Not Recovered/Not Resolved]
  - Medial tibial stress syndrome [Recovering/Resolving]
  - Alopecia [Not Recovered/Not Resolved]

NARRATIVE: CASE EVENT DATE: 201408
